FAERS Safety Report 6694950-3 (Version None)
Quarter: 2010Q2

REPORT INFORMATION
  Report Type: 
  Country: None (occurrence: None)
  Receive Date: 20100423
  Receipt Date: 20100413
  Transmission Date: 20101027
  Serious: Yes (Other)
  Sender: FDA-Public Use
  Company Number: US-GENENTECH-300556

PATIENT
  Sex: Female
  Weight: 37.6 kg

DRUGS (2)
  1. SOMATROPIN [Suspect]
     Indication: GROWTH HORMONE DEFICIENCY
     Dosage: 1.5 MG, 7/WEEK
     Dates: start: 20050224, end: 20050901
  2. SOMATROPIN [Suspect]
     Dosage: UNK
     Dates: start: 20081031

REACTIONS (1)
  - MEDULLOBLASTOMA RECURRENT [None]
